FAERS Safety Report 24791730 (Version 1)
Quarter: 2024Q4

REPORT INFORMATION
  Report Type: Spontaneous
  Country: US (occurrence: US)
  Receive Date: 20241231
  Receipt Date: 20241231
  Transmission Date: 20250115
  Serious: No
  Sender: UROGEN PHARMA
  Company Number: US-UROGEN PHARMA LTD.-2024-UGN-000168

PATIENT

DRUGS (6)
  1. JELMYTO [Suspect]
     Active Substance: MITOMYCIN
     Indication: Product used for unknown indication
     Dosage: ANTIGRADE
     Route: 065
     Dates: start: 2024, end: 2024
  2. JELMYTO [Suspect]
     Active Substance: MITOMYCIN
     Dosage: ANTIGRADE
     Route: 065
     Dates: start: 2024, end: 2024
  3. JELMYTO [Suspect]
     Active Substance: MITOMYCIN
     Dosage: ANTIGRADE
     Route: 065
     Dates: start: 2024, end: 2024
  4. JELMYTO [Suspect]
     Active Substance: MITOMYCIN
     Dosage: ANTIGRADE
     Route: 065
     Dates: start: 2024, end: 2024
  5. JELMYTO [Suspect]
     Active Substance: MITOMYCIN
     Dosage: ANTIGRADE
     Route: 065
     Dates: start: 2024, end: 2024
  6. JELMYTO [Suspect]
     Active Substance: MITOMYCIN
     Dosage: ANTIGRADE
     Route: 065
     Dates: start: 20241031, end: 20241031

REACTIONS (2)
  - Rash [Unknown]
  - Decreased appetite [Unknown]

NARRATIVE: CASE EVENT DATE: 20240101
